FAERS Safety Report 23633396 (Version 1)
Quarter: 2024Q1

REPORT INFORMATION
  Report Type: Spontaneous
  Country: US (occurrence: US)
  Receive Date: 20240314
  Receipt Date: 20240314
  Transmission Date: 20240410
  Serious: Yes (Hospitalization)
  Sender: FDA-Public Use
  Company Number: US-PFIZER INC-PV202400034923

PATIENT
  Age: 80 Year
  Sex: Female

DRUGS (1)
  1. IBRANCE [Suspect]
     Active Substance: PALBOCICLIB
     Dosage: TAKE 1 TABLET EVERY DAY ON DAYS 1-21 THEN 7 DAYS OFF OF A 28 DAY CYCLE
     Route: 048
     Dates: end: 202311

REACTIONS (2)
  - Nephrolithiasis [Unknown]
  - Sepsis [Unknown]
